FAERS Safety Report 23973435 (Version 1)
Quarter: 2024Q2

REPORT INFORMATION
  Report Type: Spontaneous
  Country: US (occurrence: None)
  Receive Date: 20240613
  Receipt Date: 20240613
  Transmission Date: 20240716
  Serious: No
  Sender: FDA-Public Use
  Company Number: US-MDD US Operations-MDD202311-004271

PATIENT
  Age: 78 Year
  Sex: Male

DRUGS (4)
  1. APOKYN [Suspect]
     Active Substance: APOMORPHINE HYDROCHLORIDE
     Indication: Parkinson^s disease
     Route: 058
     Dates: start: 20231031
  2. METOPROLOL [Concomitant]
     Active Substance: METOPROLOL
  3. AMLODIPINE [Concomitant]
     Active Substance: AMLODIPINE BESYLATE
  4. CARBIDOPA\LEVODOPA [Concomitant]
     Active Substance: CARBIDOPA\LEVODOPA
     Dosage: NOT PROVIDED

REACTIONS (3)
  - Malaise [Recovered/Resolved]
  - Asthenia [Recovered/Resolved]
  - Hypotension [Recovered/Resolved]

NARRATIVE: CASE EVENT DATE: 20231031
